FAERS Safety Report 8104391-X (Version None)
Quarter: 2011Q4

REPORT INFORMATION
  Report Type: 
  Country: None (occurrence: None)
  Receive Date: 20111222
  Receipt Date: 20110831
  Transmission Date: 20120403
  Serious: Yes (Other)
  Sender: FDA-Public Use
  Company Number: UTC-009648

PATIENT
  Age: 72 Year
  Sex: Female
  Weight: 40.45 kg

DRUGS (4)
  1. ADCIRCA [Concomitant]
  2. TYVASO [Suspect]
     Indication: COR PULMONALE CHRONIC
     Dosage: 96 MCG (24 MCG,4 IN 1 D),INHALATION
     Route: 055
     Dates: start: 20110610
  3. DIURETICS (DIURETICS) [Concomitant]
  4. OXYGEN (OXYGEN) [Concomitant]

REACTIONS (3)
  - ANAEMIA [None]
  - HYPOTENSION [None]
  - OEDEMA [None]
